FAERS Safety Report 5945245-4 (Version None)
Quarter: 2008Q4

REPORT INFORMATION
  Report Type: 
  Country: None (occurrence: None)
  Receive Date: 20081107
  Receipt Date: 20081028
  Transmission Date: 20090506
  Serious: Yes (Other)
  Sender: FDA-Public Use
  Company Number: US-JNJFOC-20081100658

PATIENT
  Sex: Male

DRUGS (3)
  1. MOTRIN IB [Suspect]
  2. MOTRIN IB [Suspect]
     Indication: DRUG USE FOR UNKNOWN INDICATION
  3. UNSPECIFIED MEDICATIONS [Interacting]
     Indication: DRUG USE FOR UNKNOWN INDICATION

REACTIONS (2)
  - DRUG INTERACTION [None]
  - DYSURIA [None]
